FAERS Safety Report 17466850 (Version 1)
Quarter: 2020Q1

REPORT INFORMATION
  Report Type: Spontaneous
  Country: US (occurrence: US)
  Receive Date: 20200214
  Receipt Date: 20200214
  Transmission Date: 20200409
  Serious: No
  Sender: FDA-Public Use
  Company Number: None

PATIENT
  Age: 19 Year
  Sex: Female
  Weight: 71.1 kg

DRUGS (1)
  1. BUDESONIDE ER [Suspect]
     Active Substance: BUDESONIDE
     Indication: COLITIS ULCERATIVE
     Route: 048
     Dates: start: 20190305, end: 20190318

REACTIONS (3)
  - Abdominal pain [None]
  - Haematochezia [None]
  - Therapy non-responder [None]

NARRATIVE: CASE EVENT DATE: 20190311
